FAERS Safety Report 7657018-5 (Version None)
Quarter: 2011Q3

REPORT INFORMATION
  Report Type: 
  Country: None (occurrence: None)
  Receive Date: 20110804
  Receipt Date: 20110729
  Transmission Date: 20111222
  Serious: Yes (Other)
  Sender: FDA-Public Use
  Company Number: CA-PFIZER INC-2011068640

PATIENT
  Age: 31 Year
  Sex: Male
  Weight: 92 kg

DRUGS (9)
  1. SOMATULINE DEPOT [Suspect]
     Indication: ACROMEGALY
     Dosage: 90 MG, EVERY 4 WEEKS
     Route: 058
     Dates: start: 20080201
  2. DDAVP [Concomitant]
     Indication: NOCTURIA
     Dosage: 0.1 MG, 2X/DAY
     Route: 048
  3. SOMAVERT [Suspect]
     Indication: ACROMEGALY
     Dosage: 10 MG, 1X/DAY
     Route: 058
     Dates: start: 20081001, end: 20100128
  4. SANDOSTATIN [Concomitant]
     Dosage: 30 MG, EVERY 3 WEEKS
     Route: 030
     Dates: start: 20000101
  5. DOSTINEX [Concomitant]
     Indication: ACROMEGALY
     Dosage: 1 MG (2X0.5MG) THREE TIMES WEEKLY
     Dates: start: 20070501
  6. TAMOXIFEN [Concomitant]
     Dosage: 20 MG, UNK
     Dates: start: 20070501
  7. SOMAVERT [Suspect]
     Dosage: 10 MG, 1X/DAY
     Route: 058
     Dates: start: 20100627
  8. ANDROGEL [Concomitant]
     Indication: HYPOGONADISM
     Dosage: 5 G, 1X/DAY
  9. SYNTHROID [Concomitant]
     Indication: HYPOTHYROIDISM
     Dosage: 0.3 MG, 1X/DAY
     Dates: start: 20050101

REACTIONS (2)
  - HAEMANGIOMA OF LIVER [None]
  - CONDITION AGGRAVATED [None]
